FAERS Safety Report 5809376-1 (Version None)
Quarter: 2008Q3

REPORT INFORMATION
  Report Type: 
  Country: None (occurrence: None)
  Receive Date: 20080714
  Receipt Date: 20080703
  Transmission Date: 20090109
  Serious: Yes (Other)
  Sender: FDA-Public Use
  Company Number: PHHY2008SK12979

PATIENT
  Sex: Female

DRUGS (6)
  1. RASILEZ [Suspect]
     Dosage: 150 MG, QD
     Dates: start: 20080625
  2. EBRANTIL [Concomitant]
     Dosage: 30 MG, UNK
  3. BISOPROLOL FUMARATE [Concomitant]
     Dosage: 5 MG, UNK
  4. RAWEL [Concomitant]
     Dosage: 15 MG, UNK
  5. LOZAP [Concomitant]
     Dosage: 50 MG, UNK
  6. SIOFOR [Concomitant]
     Dosage: 850 MG, UNK

REACTIONS (2)
  - DERMATITIS ALLERGIC [None]
  - DIARRHOEA [None]
